FAERS Safety Report 5302361-8 (Version None)
Quarter: 2007Q2

REPORT INFORMATION
  Report Type: 
  Country: None (occurrence: None)
  Receive Date: 20070413
  Receipt Date: 20070330
  Transmission Date: 20071010
  Serious: Yes (Other)
  Sender: FDA-Public Use
  Company Number: RENA-12159

PATIENT
  Sex: Female

DRUGS (3)
  1. RENAGEL [Suspect]
     Indication: HYPERPHOSPHATAEMIA
  2. FOSRENOL [Suspect]
     Indication: DRUG USE FOR UNKNOWN INDICATION
  3. ANTI-HYPERTENSIVE [Concomitant]

REACTIONS (2)
  - BLOOD PRESSURE DECREASED [None]
  - METABOLIC ACIDOSIS [None]
